FAERS Safety Report 4846486-X (Version None)
Quarter: 2005Q4

REPORT INFORMATION
  Report Type: 
  Country: None (occurrence: None)
  Receive Date: 20051202
  Receipt Date: 20051122
  Transmission Date: 20060501
  Serious: Yes (Hospitalization)
  Sender: FDA-Public Use
  Company Number: 218580

PATIENT
  Age: 60 Year
  Sex: Male

DRUGS (13)
  1. AVASTIN [Suspect]
     Indication: NON-SMALL CELL LUNG CANCER
     Dosage: 15 MG/KG
     Dates: start: 20050930
  2. TAXOL [Concomitant]
  3. CARBOPLATIN [Concomitant]
  4. WARFARIN SODIUM [Concomitant]
  5. OXYCODONE (OXYCODONE) [Concomitant]
  6. DIGOXIN [Concomitant]
  7. SIMVASTATIN [Concomitant]
  8. ALLEGRA D 24 HOUR [Concomitant]
  9. METOPROLOL TARTRATE [Concomitant]
  10. IRBESARTAN [Concomitant]
  11. APAP (ACETAMINOPHEN) [Concomitant]
  12. DEXAMETHASONE [Concomitant]
  13. HYDROCODONE BITARTRATE [Concomitant]

REACTIONS (5)
  - BLOOD CREATININE INCREASED [None]
  - BLOOD UREA INCREASED [None]
  - DISSEMINATED INTRAVASCULAR COAGULATION [None]
  - HAEMOLYTIC ANAEMIA [None]
  - RED BLOOD CELL ABNORMALITY [None]
